FAERS Safety Report 10144614 (Version 1)
Quarter: 2014Q2

REPORT INFORMATION
  Report Type: Spontaneous
  Country: US (occurrence: US)
  Receive Date: 20140430
  Receipt Date: 20140430
  Transmission Date: 20141212
  Serious: No
  Sender: FDA-Public Use
  Company Number: US-SA-2014SA043637

PATIENT
  Age: 48 Year
  Sex: Female

DRUGS (12)
  1. LOVENOX [Suspect]
     Indication: THROMBOSIS PROPHYLAXIS
     Route: 065
     Dates: start: 201402
  2. COUMADIN [Suspect]
     Indication: THROMBOSIS PROPHYLAXIS
     Route: 065
  3. ALL OTHER THERAPEUTIC PRODUCTS [Suspect]
     Indication: SHORT-BOWEL SYNDROME
     Route: 065
     Dates: start: 20140204
  4. NORCO [Concomitant]
  5. CELEXA [Concomitant]
  6. ATIVAN [Concomitant]
  7. MULTIVITAMINS [Concomitant]
  8. ZOFRAN [Concomitant]
  9. IMODIUM [Concomitant]
  10. LOMOTIL [Concomitant]
  11. CAMPHORATED TINCTURE OF OPIUM [Concomitant]
  12. TRAZODONE [Concomitant]

REACTIONS (16)
  - Diaphragmalgia [Not Recovered/Not Resolved]
  - Pain [Not Recovered/Not Resolved]
  - Pain [Not Recovered/Not Resolved]
  - Influenza like illness [Not Recovered/Not Resolved]
  - Headache [Not Recovered/Not Resolved]
  - Muscle spasms [Not Recovered/Not Resolved]
  - Nausea [Not Recovered/Not Resolved]
  - Vomiting [Not Recovered/Not Resolved]
  - Constipation [Recovered/Resolved]
  - Dysuria [Not Recovered/Not Resolved]
  - Abdominal distension [Not Recovered/Not Resolved]
  - Injection site nodule [Not Recovered/Not Resolved]
  - Injection site reaction [Not Recovered/Not Resolved]
  - Injection site erythema [Not Recovered/Not Resolved]
  - Injection site bruising [Not Recovered/Not Resolved]
  - Injection site induration [Not Recovered/Not Resolved]
